FAERS Safety Report 17252732 (Version 2)
Quarter: 2020Q3

REPORT INFORMATION
  Report Type: Spontaneous
  Country: US (occurrence: US)
  Receive Date: 20200109
  Receipt Date: 20200715
  Transmission Date: 20201102
  Serious: No
  Sender: FDA-Public Use
  Company Number: US-OPTINOSE US, INC-2019OPT000940

PATIENT
  Age: 63 Year
  Sex: Female
  Weight: 97.61 kg

DRUGS (13)
  1. EXEMESTANE. [Concomitant]
     Active Substance: EXEMESTANE
     Indication: BREAST CANCER
     Route: 065
  2. BELSOMRA [Concomitant]
     Active Substance: SUVOREXANT
     Indication: INSOMNIA
     Route: 065
  3. REPAGLINIDE. [Concomitant]
     Active Substance: REPAGLINIDE
     Indication: DIABETES MELLITUS
     Dosage: ONCE OR TWICE A DAY
     Route: 065
  4. SALINE [Concomitant]
     Active Substance: SODIUM CHLORIDE
     Indication: NASAL OPERATION
     Route: 065
  5. CRESTOR GENERIC [Concomitant]
     Active Substance: ROSUVASTATIN CALCIUM
     Indication: PRODUCT USED FOR UNKNOWN INDICATION
     Route: 065
  6. XHANCE [Suspect]
     Active Substance: FLUTICASONE PROPIONATE
     Indication: NASAL POLYPS
     Route: 045
     Dates: start: 2019
  7. XHANCE [Suspect]
     Active Substance: FLUTICASONE PROPIONATE
     Indication: SINUSITIS
     Route: 045
     Dates: start: 201902
  8. ARMOUR THYROID [Concomitant]
     Active Substance: THYROID, PORCINE
     Indication: PRODUCT USED FOR UNKNOWN INDICATION
     Route: 065
  9. PREVACID [Concomitant]
     Active Substance: LANSOPRAZOLE
     Indication: PRODUCT USED FOR UNKNOWN INDICATION
     Route: 065
  10. CYMBALTA [Concomitant]
     Active Substance: DULOXETINE HYDROCHLORIDE
     Indication: RHEUMATOID ARTHRITIS
     Route: 065
  11. VITAMIN D3 [Concomitant]
     Active Substance: CHOLECALCIFEROL
     Indication: PRODUCT USED FOR UNKNOWN INDICATION
     Route: 065
  12. JANUVIA [Concomitant]
     Active Substance: SITAGLIPTIN PHOSPHATE
     Indication: DIABETES MELLITUS
     Route: 065
  13. GLIMEPIRIDE. [Concomitant]
     Active Substance: GLIMEPIRIDE
     Indication: DIABETES MELLITUS
     Route: 065

REACTIONS (5)
  - Intentional dose omission [Unknown]
  - Nasal injury [Recovered/Resolved with Sequelae]
  - Nose deformity [Not Recovered/Not Resolved]
  - Somnolence [Not Recovered/Not Resolved]
  - Device issue [Unknown]

NARRATIVE: CASE EVENT DATE: 2019
